FAERS Safety Report 9607681 (Version 1)
Quarter: 2013Q4

REPORT INFORMATION
  Report Type: Spontaneous
  Country: US (occurrence: US)
  Receive Date: 20131009
  Receipt Date: 20131009
  Transmission Date: 20140711
  Serious: No
  Sender: FDA-Public Use
  Company Number: US-SANOFI-AVENTIS-2013SA079125

PATIENT
  Age: 81 Year
  Sex: Female
  Weight: 75.29 kg

DRUGS (4)
  1. ARAVA [Suspect]
     Route: 048
     Dates: start: 20130605, end: 20130801
  2. HYDROCODONE [Concomitant]
  3. AMOXICILLIN [Concomitant]
  4. AZITHROMAX [Concomitant]
     Indication: BRONCHITIS

REACTIONS (2)
  - Diarrhoea [Not Recovered/Not Resolved]
  - Alopecia [Not Recovered/Not Resolved]
